FAERS Safety Report 23080688 (Version 9)
Quarter: 2024Q3

REPORT INFORMATION
  Report Type: Report from Study
  Country: DE (occurrence: DE)
  Receive Date: 20231018
  Receipt Date: 20240924
  Transmission Date: 20241016
  Serious: Yes (Life-Threatening, Hospitalization, Other)
  Sender: ROCHE
  Company Number: DE-ROCHE-3438611

PATIENT
  Age: 57 Year
  Sex: Female
  Weight: 96.0 kg

DRUGS (5)
  1. OCREVUS [Suspect]
     Active Substance: OCRELIZUMAB
     Indication: Relapsing multiple sclerosis
     Dosage: ON 28/OCT/2019, SHE RECEIVED MOST RECENT DOSE OF IV OCRELIZUMAB 300 MG.
     Route: 042
     Dates: start: 20191014
  2. CLADRIBINE [Suspect]
     Active Substance: CLADRIBINE
     Indication: Relapsing multiple sclerosis
     Dosage: START DATE 05-JAN-2023
     Route: 048
  3. NATALIZUMAB [Suspect]
     Active Substance: NATALIZUMAB
     Indication: Relapsing multiple sclerosis
     Route: 042
     Dates: start: 20200716, end: 20221103
  4. DALFAMPRIDINE [Concomitant]
     Active Substance: DALFAMPRIDINE
     Route: 048
     Dates: start: 20150730
  5. CHOLECALCIFEROL [Concomitant]
     Active Substance: CHOLECALCIFEROL
     Route: 048
     Dates: start: 20161215

REACTIONS (5)
  - Uterine cancer [Recovered/Resolved]
  - Deep vein thrombosis [Recovered/Resolved with Sequelae]
  - Cerebral infarction [Recovered/Resolved with Sequelae]
  - JC polyomavirus test positive [Unknown]
  - Endocarditis noninfective [Recovered/Resolved]

NARRATIVE: CASE EVENT DATE: 20221103
